FAERS Safety Report 21451233 (Version 1)
Quarter: 2022Q4

REPORT INFORMATION
  Report Type: Spontaneous
  Country: US (occurrence: US)
  Receive Date: 20221013
  Receipt Date: 20221013
  Transmission Date: 20230112
  Serious: No
  Sender: FDA-Public Use
  Company Number: US-Indivior Limited-INDV-132839-2022

PATIENT
  Age: 36 Year
  Sex: Female

DRUGS (1)
  1. SUBLOCADE [Suspect]
     Active Substance: BUPRENORPHINE
     Indication: Drug dependence
     Dosage: 300 MILLIGRAM, QMO
     Route: 058
     Dates: start: 202104

REACTIONS (6)
  - COVID-19 [Unknown]
  - Constipation [Unknown]
  - Headache [Recovering/Resolving]
  - Abdominal discomfort [Recovering/Resolving]
  - Blood pressure increased [Unknown]
  - Vomiting [Unknown]

NARRATIVE: CASE EVENT DATE: 20220117
